FAERS Safety Report 5523047-0 (Version None)
Quarter: 2007Q4

REPORT INFORMATION
  Report Type: 
  Country: None (occurrence: None)
  Receive Date: 20071119
  Receipt Date: 20071119
  Transmission Date: 20080405
  Serious: Yes (Hospitalization)
  Sender: FDA-Public Use
  Company Number: None

PATIENT
  Sex: Female
  Weight: 76.7 kg

DRUGS (8)
  1. XELODA [Suspect]
     Dosage: 45920 MG
  2. ELOXATIN [Suspect]
     Dosage: 380 MG
  3. ATIVAN [Concomitant]
  4. BACTRIM [Concomitant]
  5. COMPAZINE [Concomitant]
  6. DECADRON [Concomitant]
  7. DILAUDID [Concomitant]
  8. IMODIUM [Concomitant]

REACTIONS (1)
  - APPENDICITIS [None]
